FAERS Safety Report 12933474 (Version 1)
Quarter: 2016Q4

REPORT INFORMATION
  Report Type: Spontaneous
  Country: JP (occurrence: JP)
  Receive Date: 20161111
  Receipt Date: 20161111
  Transmission Date: 20170207
  Serious: Yes (Disabling)
  Sender: FDA-Public Use
  Company Number: JP-MALLINCKRODT-T201605670

PATIENT
  Age: 56 Year
  Sex: Female

DRUGS (25)
  1. SOL-MELCORT [Concomitant]
     Active Substance: METHYLPREDNISOLONE SODIUM SUCCINATE
     Dosage: 500 MG
     Dates: start: 20161014, end: 20161016
  2. PRIMPERAN [Concomitant]
     Active Substance: METOCLOPRAMIDE HYDROCHLORIDE
  3. CARBAZOCHROME [Concomitant]
     Active Substance: CARBAZOCHROME
  4. OPDIVO [Suspect]
     Active Substance: NIVOLUMAB
     Indication: PRODUCT USED FOR UNKNOWN INDICATION
     Dosage: UNK
     Route: 065
     Dates: start: 20160803, end: 20160803
  5. VESICARE [Concomitant]
     Active Substance: SOLIFENACIN SUCCINATE
  6. ELNEOPA NO.1 [Concomitant]
  7. TRANEXAMIC [Concomitant]
     Route: 051
  8. HUMULIN N [Concomitant]
     Active Substance: INSULIN HUMAN
  9. LAC-B [Concomitant]
     Active Substance: BIFIDOBACTERIUM SPP.
  10. CRAVIT [Concomitant]
     Active Substance: LEVOFLOXACIN
  11. CALCIUM CHLORIDE HYDRATE [Concomitant]
     Active Substance: CALCIUM CHLORIDE
     Route: 051
  12. PREDONINE [Concomitant]
     Active Substance: PREDNISOLONE\PREDNISOLONE ACETATE\PREDNISOLONE SODIUM SUCCINATE
     Dosage: 20 MG UNK
     Dates: start: 20161018
  13. LYRICA [Concomitant]
     Active Substance: PREGABALIN
     Route: 048
  14. HYDROCORTONE [Concomitant]
     Active Substance: HYDROCORTISONE
     Dosage: 200 MG, UNK
     Dates: start: 20161017
  15. METHADONE [Suspect]
     Active Substance: METHADONE HYDROCHLORIDE
     Indication: CANCER PAIN
     Dosage: 45 MG DAILY DOSE
     Route: 048
     Dates: start: 20161004, end: 20161014
  16. LOXOPROFEN [Concomitant]
     Active Substance: LOXOPROFEN
  17. ATARAX-P [Concomitant]
     Active Substance: HYDROXYZINE HYDROCHLORIDE
  18. REMICADE [Concomitant]
     Active Substance: INFLIXIMAB
     Dosage: 240 MG
     Dates: start: 20161017
  19. MORPHINE HYDROCHLORIDE HYDRATE [Suspect]
     Active Substance: MORPHINE HYDROCHLORIDE
     Indication: PRODUCT USED FOR UNKNOWN INDICATION
     Dosage: UNK
     Route: 065
     Dates: start: 20160826, end: 20161004
  20. DICLOFENAC [Concomitant]
     Active Substance: DICLOFENAC
  21. ACELIO [Concomitant]
     Active Substance: ACETAMINOPHEN
  22. PREDONINE [Concomitant]
     Active Substance: PREDNISOLONE\PREDNISOLONE ACETATE\PREDNISOLONE SODIUM SUCCINATE
     Dosage: 60 MG UNK
     Dates: start: 20160826
  23. FLORID [Concomitant]
     Active Substance: MICONAZOLE
  24. OMEPRAZOLE. [Concomitant]
     Active Substance: OMEPRAZOLE
  25. OPDIVO [Suspect]
     Active Substance: NIVOLUMAB
     Dosage: UNK
     Route: 065
     Dates: start: 20160817, end: 20160817

REACTIONS (1)
  - Megacolon [Not Recovered/Not Resolved]

NARRATIVE: CASE EVENT DATE: 20161013
